FAERS Safety Report 5706715-7 (Version None)
Quarter: 2008Q2

REPORT INFORMATION
  Report Type: 
  Country: None (occurrence: None)
  Receive Date: 20080416
  Receipt Date: 20080411
  Transmission Date: 20081010
  Serious: Yes (Hospitalization)
  Sender: FDA-Public Use
  Company Number: PHRM2007FR02366

PATIENT
  Age: 81 Year
  Sex: Male

DRUGS (8)
  1. STABLON [Suspect]
     Dosage: 12.5 MG, QD
     Route: 048
     Dates: start: 20070831, end: 20070903
  2. ATACAND [Suspect]
     Dosage: 8 MG, QD
     Route: 048
     Dates: start: 20070902, end: 20070903
  3. MODOPAR [Suspect]
     Dosage: 50/12.5 MG, TID
     Route: 048
     Dates: end: 20070903
  4. TRIATEC [Concomitant]
     Dosage: 2.5 MG, QD
     Route: 048
     Dates: end: 20070903
  5. XATRAL - SLOW RELEASE [Concomitant]
     Dosage: 10 MG, QD
     Route: 048
     Dates: end: 20070903
  6. HEMIGOXINE NATIVELLE [Concomitant]
     Dosage: 0.125 MG, QD
     Route: 048
     Dates: start: 20070821
  7. MINISINTROM [Concomitant]
     Dosage: 1 MG, QD
     Route: 048
     Dates: start: 20070820
  8. LEPONEX [Suspect]
     Dosage: 25 MG, QD
     Route: 048
     Dates: start: 20070830, end: 20070903

REACTIONS (15)
  - BRADYCARDIA [None]
  - C-REACTIVE PROTEIN INCREASED [None]
  - CARDIAC HYPERTROPHY [None]
  - FLUID REPLACEMENT [None]
  - HYPONATRAEMIA [None]
  - HYPOTONIA [None]
  - INFLAMMATION [None]
  - LEFT ATRIAL DILATATION [None]
  - LOSS OF CONSCIOUSNESS [None]
  - MALAISE [None]
  - MYDRIASIS [None]
  - NEUTROPHILIA [None]
  - RESPIRATORY ARREST [None]
  - RIGHT ATRIAL DILATATION [None]
  - VENTRICULAR DYSKINESIA [None]
